FAERS Safety Report 8625061-5 (Version None)
Quarter: 2012Q3

REPORT INFORMATION
  Report Type: 
  Country: None (occurrence: None)
  Receive Date: 20120827
  Receipt Date: 20120822
  Transmission Date: 20120928
  Serious: Yes (Life-Threatening, Hospitalization)
  Sender: FDA-Public Use
  Company Number: FR-PFIZER INC-2012205581

PATIENT
  Age: 4 Year
  Sex: Male
  Weight: 18.5 kg

DRUGS (3)
  1. ACETAMINOPHEN [Concomitant]
     Indication: COUGH
  2. PEDIATRIC ADVIL [Suspect]
     Indication: PYREXIA
     Dosage: 1 DOSE-WEIGHT
     Route: 048
     Dates: start: 20091016
  3. ACETAMINOPHEN [Concomitant]
     Indication: PYREXIA
     Dosage: UNK
     Dates: start: 20091015

REACTIONS (4)
  - MELAENA [None]
  - GASTRIC HAEMORRHAGE [None]
  - HAEMATEMESIS [None]
  - GASTRITIS [None]
